FAERS Safety Report 10220585 (Version 2)
Quarter: 2014Q2

REPORT INFORMATION
  Report Type: Spontaneous
  Country: US (occurrence: None)
  Receive Date: 20140604
  Receipt Date: 20140616
  Transmission Date: 20141212
  Serious: Yes (Death)
  Sender: FDA-Public Use
  Company Number: 2014-US-006459

PATIENT
  Age: 39 Year
  Sex: Male

DRUGS (4)
  1. CLOZAPINE USP, ODT (CLOZAPINE, USP) TABLET, MG [Suspect]
     Route: 048
  2. COGENTIN (BENZATROPINE MESILATE) [Concomitant]
  3. KLONOPIN (CLONAZEPAM) (TABLETS) [Concomitant]
  4. DEPAKOTE ER (VALPROATE SEMISODIUM) [Concomitant]

REACTIONS (1)
  - Death [None]
